FAERS Safety Report 5952279-2 (Version None)
Quarter: 2008Q4

REPORT INFORMATION
  Report Type: 
  Country: None (occurrence: None)
  Receive Date: 20081022
  Receipt Date: 20080811
  Transmission Date: 20090506
  Serious: No
  Sender: FDA-Public Use
  Company Number: SPV1-2008-01723

PATIENT
  Age: 54 Year
  Sex: Female
  Weight: 68 kg

DRUGS (4)
  1. VYVANSE [Suspect]
     Indication: DISTURBANCE IN ATTENTION
     Dosage: 30 MG, ORAL
     Route: 048
     Dates: start: 20071001, end: 20071201
  2. ATENOLOL [Concomitant]
  3. LISINOPRIL [Concomitant]
  4. SERTRALINE [Concomitant]

REACTIONS (1)
  - SOMNOLENCE [None]
